FAERS Safety Report 8440658-3 (Version None)
Quarter: 2012Q2

REPORT INFORMATION
  Report Type: 
  Country: None (occurrence: None)
  Receive Date: 20120615
  Receipt Date: 20120607
  Transmission Date: 20120825
  Serious: Yes (Hospitalization)
  Sender: FDA-Public Use
  Company Number: JP-JNJFOC-20120605270

PATIENT
  Age: 56 Year

DRUGS (2)
  1. REMICADE [Suspect]
     Indication: COLITIS ULCERATIVE
     Route: 042
     Dates: start: 20100110
  2. REMICADE [Suspect]
     Dosage: NUMBER OF DOSES UNKNOWN
     Route: 042

REACTIONS (1)
  - CYTOMEGALOVIRUS ENTERITIS [None]
